APPROVED DRUG PRODUCT: LINCOMYCIN HYDROCHLORIDE
Active Ingredient: LINCOMYCIN HYDROCHLORIDE
Strength: EQ 300MG BASE/ML
Dosage Form/Route: INJECTABLE;INJECTION
Application: A215657 | Product #001 | TE Code: AP
Applicant: GLAND PHARMA LTD
Approved: Sep 26, 2022 | RLD: No | RS: No | Type: RX